FAERS Safety Report 22083790 (Version 1)
Quarter: 2023Q1

REPORT INFORMATION
  Report Type: Spontaneous
  Country: JP (occurrence: None)
  Receive Date: 20230310
  Receipt Date: 20230310
  Transmission Date: 20230417
  Serious: Yes (Hospitalization, Other)
  Sender: FDA-Public Use
  Company Number: JP-Merck Healthcare KGaA-9387756

PATIENT
  Age: 86 Year
  Sex: Female

DRUGS (7)
  1. METGLUCO [Suspect]
     Active Substance: METFORMIN HYDROCHLORIDE
     Indication: Type 2 diabetes mellitus
     Route: 048
  2. ACTOS [Suspect]
     Active Substance: PIOGLITAZONE HYDROCHLORIDE
     Indication: Product used for unknown indication
  3. CANAGLIFLOZIN\TENELIGLIPTIN [Suspect]
     Active Substance: CANAGLIFLOZIN\TENELIGLIPTIN
     Indication: Product used for unknown indication
  4. ENTRESTO [Suspect]
     Active Substance: SACUBITRIL\VALSARTAN
     Indication: Cardiac failure
     Dosage: 200 UNSPECIFIED UNITS
  5. LASIX [Suspect]
     Active Substance: FUROSEMIDE
     Indication: Cardiac failure
     Dosage: 20 UNSPECIFIED UNITS
  6. MOLNUPIRAVIR [Concomitant]
     Active Substance: MOLNUPIRAVIR
     Indication: Product used for unknown indication
     Route: 048
  7. TENELIGLIPTIN [Concomitant]
     Active Substance: TENELIGLIPTIN
     Indication: Product used for unknown indication

REACTIONS (11)
  - COVID-19 [Unknown]
  - Cardiac failure [Unknown]
  - Acute myocardial infarction [Unknown]
  - Glomerular filtration rate decreased [Unknown]
  - Loss of personal independence in daily activities [Unknown]
  - Bacterial test positive [Unknown]
  - Tinea infection [Unknown]
  - Dermatitis diaper [Unknown]
  - Glycosylated haemoglobin increased [Unknown]
  - Hyperglycaemia [Not Recovered/Not Resolved]
  - Dehydration [Unknown]
